FAERS Safety Report 7572788-2 (Version None)
Quarter: 2011Q2

REPORT INFORMATION
  Report Type: 
  Country: None (occurrence: None)
  Receive Date: 20110627
  Receipt Date: 20110621
  Transmission Date: 20111010
  Serious: No
  Sender: FDA-Public Use
  Company Number: US-PFIZER INC-2009164611

PATIENT
  Sex: Male
  Weight: 90.7 kg

DRUGS (7)
  1. ALPRAZOLAM [Suspect]
     Indication: TREMOR
     Dosage: 1 MG, 4X/DAY
     Route: 048
     Dates: start: 20060101
  2. ALPRAZOLAM [Suspect]
     Dosage: UNK
  3. COPAXONE [Concomitant]
     Indication: MULTIPLE SCLEROSIS
     Dosage: 40 MG, UNK
     Dates: start: 20040801
  4. ALPRAZOLAM [Suspect]
     Indication: AGORAPHOBIA
  5. SEROQUEL [Suspect]
     Indication: SOMNOLENCE
     Dosage: 400 MG, DAILY
     Dates: start: 20000801
  6. NEURONTIN [Concomitant]
     Indication: NEURALGIA
     Dosage: 30 MG, 3X/DAY
     Dates: start: 20040801
  7. XANAX [Suspect]
     Dosage: UNK

REACTIONS (14)
  - DRUG INEFFECTIVE [None]
  - TREMOR [None]
  - NAUSEA [None]
  - WITHDRAWAL SYNDROME [None]
  - ANXIETY [None]
  - MALAISE [None]
  - HEADACHE [None]
  - RESTLESSNESS [None]
  - FATIGUE [None]
  - INSOMNIA [None]
  - FEELING JITTERY [None]
  - NERVOUSNESS [None]
  - DIARRHOEA [None]
  - BEDRIDDEN [None]
